FAERS Safety Report 13088398 (Version 3)
Quarter: 2020Q3

REPORT INFORMATION
  Report Type: Report from Study
  Country: AT (occurrence: AT)
  Receive Date: 20170105
  Receipt Date: 20190108
  Transmission Date: 20201104
  Serious: Yes (Hospitalization, Other)
  Sender: FDA-Public Use
  Company Number: AT-JNJFOC-20161227029

PATIENT
  Age: 33 Year
  Sex: Male
  Weight: 79.5 kg

DRUGS (10)
  1. VITAMIN D3 [Concomitant]
     Active Substance: CHOLECALCIFEROL
     Indication: OSTEOPOROSIS PROPHYLAXIS
     Dosage: OLEOVIT, 10 DROPS
     Route: 048
     Dates: start: 20161219
  2. USTEKINUMAB [Suspect]
     Active Substance: USTEKINUMAB
     Indication: COLITIS ULCERATIVE
     Dosage: START DOSE AT 12:15 HOURS ??VIAL NUMBERS: 1330315, 1329311, 1323451 AND 1335719
     Route: 058
     Dates: start: 20160602
  3. PURINETHOL [Concomitant]
     Active Substance: MERCAPTOPURINE
     Indication: COLITIS ULCERATIVE
     Route: 048
  4. VENOFER [Concomitant]
     Active Substance: IRON SUCROSE
     Indication: IRON DEFICIENCY ANAEMIA
     Route: 042
  5. VITAMIN D3 [Concomitant]
     Active Substance: CHOLECALCIFEROL
     Indication: OSTEOPOROSIS PROPHYLAXIS
     Dosage: 40 DROPS
     Route: 048
     Dates: end: 201610
  6. CURCUMIN [Concomitant]
     Active Substance: CURCUMIN
     Indication: COLITIS ULCERATIVE
     Route: 048
     Dates: start: 20161219
  7. USTEKINUMAB [Suspect]
     Active Substance: USTEKINUMAB
     Route: 058
  8. MESALAZINE [Concomitant]
     Active Substance: MESALAMINE
     Indication: COLITIS ULCERATIVE
     Route: 054
     Dates: end: 20160517
  9. TRAUMEEL [Concomitant]
     Route: 065
     Dates: start: 20160907, end: 20160928
  10. DIPRIVAN [Concomitant]
     Active Substance: PROPOFOL
     Indication: SEDATIVE THERAPY
     Route: 042
     Dates: start: 20160525, end: 20160525

REACTIONS (2)
  - Rectal adenocarcinoma [Recovered/Resolved with Sequelae]
  - Colon dysplasia [Recovered/Resolved]

NARRATIVE: CASE EVENT DATE: 20160921
